FAERS Safety Report 9258404 (Version 1)
Quarter: 2013Q1

REPORT INFORMATION
  Report Type: Spontaneous
  Country: US (occurrence: None)
  Receive Date: 20121212
  Receipt Date: 20121212
  Transmission Date: 20140127
  Serious: No
  Sender: FDA-Public Use
  Company Number: 1210USA013809

PATIENT
  Sex: Male

DRUGS (3)
  1. VICTRELIS [Suspect]
     Dates: start: 20120913
  2. RIBAVIRIN [Suspect]
     Dates: start: 20120801
  3. PEGASYS [Suspect]
     Dates: start: 20120801

REACTIONS (1)
  - Haemoglobin decreased [None]
